FAERS Safety Report 5669330-X (Version None)
Quarter: 2008Q1

REPORT INFORMATION
  Report Type: 
  Country: None (occurrence: None)
  Receive Date: 20080317
  Receipt Date: 20080306
  Transmission Date: 20080703
  Serious: Yes (Other)
  Sender: FDA-Public Use
  Company Number: PHHO2007BR12582

PATIENT
  Age: 87 Year
  Sex: Female
  Weight: 50 kg

DRUGS (11)
  1. EXELON [Suspect]
     Indication: DEMENTIA ALZHEIMER'S TYPE
     Dosage: 1.5 MG, BID
     Route: 048
     Dates: start: 20070405, end: 20070501
  2. EXELON [Suspect]
     Dosage: 3 MG, BID
     Route: 048
     Dates: start: 20070501
  3. PREXIGE [Suspect]
     Dosage: 400 MG, QD
     Route: 048
  4. ANTIINFLAMMATORY/ANTIRHEUMATIC PRODUCTS [Concomitant]
     Dosage: 1 DF, Q12H
     Route: 048
  5. VITAMIN E [Concomitant]
  6. SIMVASTATIN [Concomitant]
     Dosage: 1 DF, QD
     Route: 048
  7. CALCIUM [Concomitant]
     Dosage: 1 DF, QD
     Route: 048
  8. VITAMIN B-12 [Concomitant]
  9. RANITIDINE [Concomitant]
  10. AAS [Concomitant]
     Indication: PROMOTION OF PERIPHERAL CIRCULATION
  11. DIAZEPAM [Concomitant]
     Indication: SLEEP DISORDER
     Dosage: 0.25 DF, QHS

REACTIONS (10)
  - ARTHRITIS [None]
  - BACK INJURY [None]
  - BACK PAIN [None]
  - FALL [None]
  - JOINT SWELLING [None]
  - MUSCLE RIGIDITY [None]
  - OEDEMA PERIPHERAL [None]
  - ORAL ADMINISTRATION COMPLICATION [None]
  - PAIN [None]
  - SPINAL FRACTURE [None]
